FAERS Safety Report 6169543-7 (Version None)
Quarter: 2009Q2

REPORT INFORMATION
  Report Type: 
  Country: None (occurrence: None)
  Receive Date: 20090428
  Receipt Date: 20090416
  Transmission Date: 20091009
  Serious: Yes (Other)
  Sender: FDA-Public Use
  Company Number: ES-JNJFOC-20090404563

PATIENT
  Sex: Female

DRUGS (5)
  1. RISPERDAL [Suspect]
     Indication: DRUG USE FOR UNKNOWN INDICATION
     Route: 048
  2. COAPROVEL [Concomitant]
     Indication: HYPERTENSION
     Route: 048
  3. SIMTROM [Concomitant]
     Route: 048
  4. CARDYL [Concomitant]
     Indication: HYPERCHOLESTEROLAEMIA
     Route: 048
  5. COROPRES [Concomitant]
     Indication: HYPERTENSION
     Route: 048

REACTIONS (2)
  - DEMENTIA [None]
  - GAIT DISTURBANCE [None]
